FAERS Safety Report 8337713-5 (Version None)
Quarter: 2012Q2

REPORT INFORMATION
  Report Type: 
  Country: None (occurrence: None)
  Receive Date: 20120504
  Receipt Date: 20120502
  Transmission Date: 20120825
  Serious: Yes (Death, Life-Threatening)
  Sender: FDA-Public Use
  Company Number: DK-B.I. PHARMACEUTICALS,INC./RIDGEFIELD-2012-SW-00373DB

PATIENT
  Sex: Female
  Weight: 50 kg

DRUGS (6)
  1. ENALAPRIL MALEATE [Concomitant]
     Dates: start: 20101118, end: 20120423
  2. FUROSEMIDE [Concomitant]
     Dates: start: 20120302, end: 20120423
  3. SIMVASTATIN [Concomitant]
     Dates: start: 20111010, end: 20120423
  4. PRADAXA [Suspect]
     Indication: CARDIAC VALVE PROSTHESIS USER
     Dosage: 220 MG
     Route: 048
     Dates: start: 20120301, end: 20120417
  5. ACETAMINOPHEN [Concomitant]
     Dates: start: 20100103
  6. SERTRALINE HYDROCHLORIDE [Concomitant]
     Dates: start: 20120302, end: 20120423

REACTIONS (4)
  - MELAENA [None]
  - DIARRHOEA [None]
  - NAUSEA [None]
  - DECREASED APPETITE [None]
